FAERS Safety Report 25707072 (Version 1)
Quarter: 2025Q3

REPORT INFORMATION
  Report Type: Spontaneous
  Country: US (occurrence: US)
  Receive Date: 20250820
  Receipt Date: 20250820
  Transmission Date: 20251020
  Serious: Yes (Other)
  Sender: JOHNSON AND JOHNSON
  Company Number: US-JNJFOC-20250820166

PATIENT

DRUGS (1)
  1. CARVYKTI [Suspect]
     Active Substance: CILTACABTAGENE AUTOLEUCEL
     Indication: Plasma cell myeloma
     Route: 065

REACTIONS (5)
  - Cranial nerve paralysis [Unknown]
  - Immune-mediated enterocolitis [Unknown]
  - Immune effector cell-associated neurotoxicity syndrome [Unknown]
  - Haemophagocytic lymphohistiocytosis [Unknown]
  - Parkinsonism [Unknown]
